FAERS Safety Report 8894116 (Version 2)
Quarter: 2012Q4

REPORT INFORMATION
  Report Type: 
  Country: BR (occurrence: BR)
  Receive Date: 20121108
  Receipt Date: 20121205
  Transmission Date: 20130627
  Serious: Yes (Death)
  Sender: FDA-Public Use
  Company Number: BR-PFIZER INC-2012277474

PATIENT
  Age: 72 Year
  Sex: Female

DRUGS (3)
  1. ALDACTONE [Suspect]
     Indication: CARDIAC DISORDER
     Dosage: 25 mg (one tablet), 1x/day
     Dates: start: 20120827
  2. XALATAN [Suspect]
     Indication: RETINAL DISORDER
     Dosage: 3 ug (one drop in each eye), 1x/day
     Route: 047
     Dates: start: 20100827
  3. FUROSEMIDE [Concomitant]

REACTIONS (1)
  - Acute myocardial infarction [Fatal]
